FAERS Safety Report 11407728 (Version 1)
Quarter: 2015Q3

REPORT INFORMATION
  Report Type: Spontaneous
  Country: US (occurrence: US)
  Receive Date: 20150821
  Receipt Date: 20150821
  Transmission Date: 20151125
  Serious: No
  Sender: FDA-Public Use
  Company Number: US-NOVOPROD-455350

PATIENT
  Age: 84 Year
  Sex: Male
  Weight: 72.56 kg

DRUGS (1)
  1. VICTOZA [Suspect]
     Active Substance: LIRAGLUTIDE
     Indication: TYPE 2 DIABETES MELLITUS
     Dosage: UNK
     Route: 058
     Dates: end: 201406

REACTIONS (5)
  - Renal impairment [Not Recovered/Not Resolved]
  - Injection site pain [Recovered/Resolved]
  - Back pain [Not Recovered/Not Resolved]
  - Injection site urticaria [Recovered/Resolved]
  - Retching [Recovered/Resolved]

NARRATIVE: CASE EVENT DATE: 2014
